FAERS Safety Report 12389239 (Version 1)
Quarter: 2016Q2

REPORT INFORMATION
  Report Type: Spontaneous
  Country: US (occurrence: None)
  Receive Date: 20160519
  Receipt Date: 20160519
  Transmission Date: 20160815
  Serious: No
  Sender: FDA-Public Use
  Company Number: None

PATIENT
  Age: 39 Year
  Sex: Female
  Weight: 57.3 kg

DRUGS (1)
  1. MICAFUNGIN [Suspect]
     Active Substance: MICAFUNGIN
     Indication: OESOPHAGEAL CANDIDIASIS
     Route: 042
     Dates: start: 20160515, end: 20160517

REACTIONS (1)
  - Neutropenia [None]

NARRATIVE: CASE EVENT DATE: 20160517
